FAERS Safety Report 20937506 (Version 1)
Quarter: 2022Q2

REPORT INFORMATION
  Report Type: Spontaneous
  Country: US (occurrence: US)
  Receive Date: 20220609
  Receipt Date: 20220609
  Transmission Date: 20220721
  Serious: No
  Sender: FDA-Public Use
  Company Number: US-SPECGX-T202102564

PATIENT
  Age: 71 Year
  Sex: Female
  Weight: 41 kg

DRUGS (1)
  1. ACETAMINOPHEN\HYDROCODONE [Suspect]
     Active Substance: ACETAMINOPHEN\HYDROCODONE
     Indication: Pain
     Dosage: UNK (HALF TABLET ONCE A DAY, FOR THREE CONSECUTIVE DAYS)
     Route: 048
     Dates: start: 20211027, end: 20211029

REACTIONS (2)
  - Haemorrhoids [Not Recovered/Not Resolved]
  - Constipation [Recovering/Resolving]

NARRATIVE: CASE EVENT DATE: 20211027
